FAERS Safety Report 18912329 (Version 3)
Quarter: 2021Q3

REPORT INFORMATION
  Report Type: Report from Study
  Country: US (occurrence: US)
  Receive Date: 20210219
  Receipt Date: 20210702
  Transmission Date: 20211014
  Serious: Yes (Hospitalization)
  Sender: FDA-Public Use
  Company Number: US-ACADIA PHARMACEUTICALS INC.-ACA-2021-PIM-000374

PATIENT
  Age: 63 Year
  Sex: Female

DRUGS (7)
  1. NUPLAZID [Suspect]
     Active Substance: PIMAVANSERIN TARTRATE
     Indication: PARKINSON^S DISEASE PSYCHOSIS
     Dosage: 34 MILLIGRAM, QD
     Route: 048
     Dates: start: 20210122
  2. NUPLAZID [Suspect]
     Active Substance: PIMAVANSERIN TARTRATE
     Indication: DELUSION
  3. SEROQUEL [Suspect]
     Active Substance: QUETIAPINE FUMARATE
  4. RIVASTIGMINE. [Suspect]
     Active Substance: RIVASTIGMINE
     Dosage: UNK
  5. NUPLAZID [Suspect]
     Active Substance: PIMAVANSERIN TARTRATE
     Indication: HALLUCINATION
  6. CARBIDOPA/LEVODOPA [Concomitant]
     Active Substance: CARBIDOPA\LEVODOPA
  7. MELATONIN [Concomitant]
     Active Substance: MELATONIN

REACTIONS (12)
  - Pain [Unknown]
  - Delirium [Not Recovered/Not Resolved]
  - Blood pressure increased [Unknown]
  - Hallucination [Unknown]
  - Hallucination, visual [Recovering/Resolving]
  - Irritability [Not Recovered/Not Resolved]
  - Hallucination [Recovering/Resolving]
  - Aneurysm [Unknown]
  - Hypersomnia [Not Recovered/Not Resolved]
  - Therapeutic product effect incomplete [Unknown]
  - Neuralgia [Unknown]
  - Insomnia [Not Recovered/Not Resolved]

NARRATIVE: CASE EVENT DATE: 202101
